FAERS Safety Report 8291128-7 (Version None)
Quarter: 2012Q2

REPORT INFORMATION
  Report Type: 
  Country: None (occurrence: None)
  Receive Date: 20120417
  Receipt Date: 20110803
  Transmission Date: 20120825
  Serious: No
  Sender: FDA-Public Use
  Company Number: US-ASTRAZENECA-2011SE46892

PATIENT
  Age: 25951 Day
  Sex: Female

DRUGS (18)
  1. NEXIUM [Suspect]
     Route: 048
     Dates: start: 20090203
  2. PNEUMOCOCCAL PNEUMOVAX [Concomitant]
  3. LASIX [Concomitant]
  4. ADVAIR DISKUS 100/50 [Concomitant]
  5. PREVACID [Concomitant]
  6. H1N1 [Concomitant]
  7. BYSTOLIC [Concomitant]
  8. SIMVASTATIN [Concomitant]
  9. COMBIVENT [Concomitant]
  10. KLOR-CON M20 [Concomitant]
  11. DUONEB [Concomitant]
  12. KENALOG [Concomitant]
  13. VITAMIN B-12 [Concomitant]
  14. DELESTROGEN [Concomitant]
  15. DEPO-PROVERA [Concomitant]
  16. FLU VACCINE [Concomitant]
  17. BUSPIRONE HCL [Concomitant]
  18. MELOXICAM [Concomitant]

REACTIONS (7)
  - ABDOMINAL PAIN UPPER [None]
  - PNEUMONIA [None]
  - UPPER RESPIRATORY TRACT INFECTION [None]
  - VIRAL UPPER RESPIRATORY TRACT INFECTION [None]
  - HYPOKALAEMIA [None]
  - CONSTIPATION [None]
  - ACUTE SINUSITIS [None]
